FAERS Safety Report 8882536 (Version 1)
Quarter: 2012Q4

REPORT INFORMATION
  Report Type: 
  Country: US (occurrence: US)
  Receive Date: 20121103
  Receipt Date: 20121103
  Transmission Date: 20130627
  Serious: Yes (Hospitalization)
  Sender: FDA-Public Use
  Company Number: US-US-EMD SERONO, INC.-233225K07USA

PATIENT
  Sex: Female
  Weight: 77 kg

DRUGS (6)
  1. REBIF [Suspect]
     Indication: MULTIPLE SCLEROSIS
     Route: 058
     Dates: start: 20050404
  2. MELATONIN [Concomitant]
     Indication: PRODUCT USED FOR UNKNOWN INDICATION
  3. BETHANECHOL [Concomitant]
     Indication: PRODUCT USED FOR UNKNOWN INDICATION
     Route: 065
  4. FLOMAX [Concomitant]
     Indication: PRODUCT USED FOR UNKNOWN INDICATION
     Route: 065
  5. CELEXA [Concomitant]
     Indication: PRODUCT USED FOR UNKNOWN INDICATION
     Route: 065
  6. DEPAKOTE [Concomitant]
     Indication: CONVULSION
     Dates: start: 20051117

REACTIONS (9)
  - Convulsion [Recovered/Resolved]
  - Nervous system disorder [Unknown]
  - Feeling abnormal [Unknown]
  - Personality change [Unknown]
  - Abnormal behaviour [Unknown]
  - Weight increased [Not Recovered/Not Resolved]
  - Muscular weakness [Recovered/Resolved]
  - Injection site pain [Recovered/Resolved]
  - Injection site erythema [Recovered/Resolved]
